FAERS Safety Report 9124334 (Version 7)
Quarter: 2013Q4

REPORT INFORMATION
  Report Type: Spontaneous
  Country: US (occurrence: US)
  Receive Date: 20130227
  Receipt Date: 20131119
  Transmission Date: 20140711
  Serious: Yes (Hospitalization)
  Sender: FDA-Public Use
  Company Number: US-GILEAD-2011-0045661

PATIENT
  Age: 48 Year
  Sex: Female
  Weight: 67.3 kg

DRUGS (13)
  1. LETAIRIS [Suspect]
     Indication: PRODUCT USED FOR UNKNOWN INDICATION
     Dosage: 5MG PER DAY
     Route: 048
     Dates: start: 2011, end: 201110
  2. FLOLAN [Suspect]
     Indication: PULMONARY ARTERIAL HYPERTENSION
     Dosage: 8.8NGKM CONTINUOUS
     Route: 042
     Dates: start: 20030226
  3. TRUVADA [Concomitant]
     Indication: HIV INFECTION
     Dosage: 300 MG, QD
     Route: 048
  4. SINGULAIR [Concomitant]
     Dosage: 10MG PER DAY
     Route: 048
  5. DIGOXIN [Concomitant]
     Dosage: 250MCG PER DAY
     Route: 048
  6. COUMADIN                           /00014802/ [Concomitant]
     Route: 048
  7. REVATIO [Concomitant]
     Dosage: 3TAB THREE TIMES PER DAY
     Route: 048
  8. DULCOLAX                           /00064401/ [Concomitant]
     Dosage: UNK
     Route: 048
  9. OMEPRAZOLE [Concomitant]
     Dosage: 20 MG, QD
     Route: 048
  10. LORAZEPAM [Concomitant]
     Dosage: 1 MG, PRN
     Route: 048
  11. OXYBUTYNIN [Concomitant]
     Dosage: 10 MG, QD
     Route: 048
  12. ALBUTEROL                          /00139501/ [Concomitant]
     Dosage: 90 ?G, UNK
     Route: 055
  13. ADCIRCA [Concomitant]

REACTIONS (9)
  - Asthma [Recovered/Resolved]
  - Bronchitis [Recovered/Resolved]
  - Movement disorder [Recovered/Resolved]
  - Gait disturbance [Recovered/Resolved]
  - Obstruction [Recovered/Resolved]
  - Dizziness [Recovered/Resolved]
  - Dyspnoea [Recovered/Resolved]
  - Device alarm issue [Recovered/Resolved]
  - Device occlusion [Recovered/Resolved]
